FAERS Safety Report 10016021 (Version 2)
Quarter: 2014Q1

REPORT INFORMATION
  Report Type: Spontaneous
  Country: US (occurrence: US)
  Receive Date: 20140317
  Receipt Date: 20140318
  Transmission Date: 20141002
  Serious: Yes (Life-Threatening, Hospitalization, Other)
  Sender: FDA-Public Use
  Company Number: US-PFIZER INC-2014074978

PATIENT
  Age: 44 Year
  Sex: Female

DRUGS (2)
  1. ALPRAZOLAM [Suspect]
     Dosage: 60 MG (SIXTY 1-MG TABLETS), UNK
     Route: 048
  2. K-DUR [Suspect]
     Indication: BLOOD POTASSIUM DECREASED
     Dosage: 600 MEQ (THIRTY 20-MEQ TABLETS), UNK
     Route: 048

REACTIONS (4)
  - Intentional overdose [Unknown]
  - Hyperkalaemia [Recovered/Resolved]
  - Bezoar [Recovered/Resolved]
  - Mental status changes [Unknown]
